FAERS Safety Report 7776438-1 (Version None)
Quarter: 2011Q3

REPORT INFORMATION
  Report Type: 
  Country: None (occurrence: None)
  Receive Date: 20110926
  Receipt Date: 20110921
  Transmission Date: 20111222
  Serious: Yes (Other)
  Sender: FDA-Public Use
  Company Number: US-PFIZER INC-2011058680

PATIENT
  Sex: Female
  Weight: 50.794 kg

DRUGS (3)
  1. PHENYTOIN [Suspect]
     Indication: CONVULSION
     Dosage: UNK
  2. DILANTIN-125 [Suspect]
     Indication: CONVULSION
     Dosage: 100 MG, UNK
  3. PRIMIDONE [Concomitant]
     Indication: CONVULSION
     Dosage: UNK
     Route: 048

REACTIONS (4)
  - SURGERY [None]
  - DRUG INEFFECTIVE [None]
  - DRUG INTOLERANCE [None]
  - CHOLECYSTECTOMY [None]
